FAERS Safety Report 6358374-0 (Version None)
Quarter: 2009Q3

REPORT INFORMATION
  Report Type: 
  Country: None (occurrence: None)
  Receive Date: 20090916
  Receipt Date: 20090905
  Transmission Date: 20100115
  Serious: Yes (Hospitalization, Other)
  Sender: FDA-Public Use
  Company Number: US-PFIZER INC-2009264682

PATIENT
  Sex: Female
  Weight: 81.633 kg

DRUGS (21)
  1. NAPROXEN [Suspect]
     Indication: OSTEOARTHRITIS
     Dosage: UNK
     Route: 048
     Dates: start: 20070420
  2. BLINDED *NO SUBJECT DRUG [Suspect]
     Indication: OSTEOARTHRITIS
     Dosage: UNK
     Route: 048
     Dates: start: 20070420
  3. BLINDED *PLACEBO [Suspect]
     Indication: OSTEOARTHRITIS
     Dosage: UNK
     Route: 048
     Dates: start: 20070420
  4. BLINDED CELECOXIB [Suspect]
     Indication: OSTEOARTHRITIS
     Dosage: UNK
     Route: 048
     Dates: start: 20070420
  5. BLINDED IBUPROFEN [Suspect]
     Indication: OSTEOARTHRITIS
     Dosage: UNK
     Route: 048
     Dates: start: 20070420
  6. NAPROXEN [Suspect]
     Dosage: UNK
     Route: 048
     Dates: start: 20070420
  7. NAPROXEN [Suspect]
     Indication: RHEUMATOID ARTHRITIS
  8. BLINDED *NO SUBJECT DRUG [Suspect]
     Indication: RHEUMATOID ARTHRITIS
  9. BLINDED *PLACEBO [Suspect]
     Indication: RHEUMATOID ARTHRITIS
  10. BLINDED CELECOXIB [Suspect]
     Indication: RHEUMATOID ARTHRITIS
  11. BLINDED IBUPROFEN [Suspect]
     Indication: RHEUMATOID ARTHRITIS
  12. NAPROXEN [Suspect]
  13. ACETYLSALICYLIC ACID [Concomitant]
     Dosage: 325 MG, 1X/DAY
     Route: 048
  14. LORATADINE [Concomitant]
     Dosage: 10 MG, 1X/DAY
     Route: 048
  15. MONTELUKAST SODIUM [Concomitant]
     Dosage: 10 MG, 1X/DAY
     Route: 048
  16. ATENOLOL [Concomitant]
     Dosage: 75 MG, 2X/DAY
     Route: 048
  17. VALSARTAN [Concomitant]
     Dosage: 160 MG, 1X/DAY
     Route: 048
  18. SIMVASTATIN [Concomitant]
     Dosage: 40 MG, 1X/DAY
     Route: 048
  19. MULTI-VITAMINS [Concomitant]
     Dosage: UNK
     Route: 048
  20. TORASEMIDE [Concomitant]
     Dosage: 20 MG, 1X/DAY
     Route: 048
  21. BETACAROTENE [Concomitant]
     Dosage: 25000 UNITS, 1X/DAY
     Route: 048

REACTIONS (3)
  - CHEST PAIN [None]
  - CORONARY ARTERY STENOSIS [None]
  - DYSPNOEA [None]
